FAERS Safety Report 6801930-3 (Version None)
Quarter: 2010Q2

REPORT INFORMATION
  Report Type: 
  Country: None (occurrence: None)
  Receive Date: 20100629
  Receipt Date: 20100624
  Transmission Date: 20101027
  Serious: Yes (Hospitalization, Other)
  Sender: FDA-Public Use
  Company Number: CHNY2010JP00468

PATIENT
  Age: 82 Year
  Sex: Female

DRUGS (5)
  1. DICLOFENAC SODIUM (NCH) [Suspect]
     Indication: BACK PAIN
     Dosage: PATCH OF 15 MG
     Dates: start: 20090601
  2. ACETYLSALICYLIC ACID SRT [Suspect]
     Dosage: 100 MG/DAY
     Route: 048
     Dates: start: 20090901
  3. KETOPROFEN [Suspect]
     Dosage: 20 MG, UNK
     Dates: start: 20090601
  4. LOXOPROFEN [Suspect]
     Dosage: 180 MG/DAY
     Route: 048
     Dates: start: 20090901
  5. METHYL SALICYLATE [Suspect]
     Dosage: 1.0 G, UNK
     Dates: start: 20090601

REACTIONS (9)
  - ABDOMINAL PAIN [None]
  - ABDOMINAL TENDERNESS [None]
  - ANGINA PECTORIS [None]
  - GASTRIC ULCER [None]
  - GASTROINTESTINAL NECROSIS [None]
  - LARGE INTESTINE PERFORATION [None]
  - LEUKAEMIC INFILTRATION [None]
  - MALAISE [None]
  - PERITONEAL INFECTION [None]
